FAERS Safety Report 8840517 (Version 1)
Quarter: 2012Q4

REPORT INFORMATION
  Report Type: 
  Country: US (occurrence: US)
  Receive Date: 20121015
  Receipt Date: 20121015
  Transmission Date: 20130627
  Serious: Yes (Other)
  Sender: FDA-Public Use
  Company Number: US-ASTRAZENECA-2012SE76949

PATIENT
  Age: 510 Month
  Sex: Female
  Weight: 61.2 kg

DRUGS (7)
  1. SEROQUEL [Suspect]
     Indication: BIPOLAR DISORDER
     Route: 048
  2. EFFEXOR [Suspect]
     Indication: DEPRESSION
     Route: 048
     Dates: end: 2006
  3. EFFEXOR [Suspect]
     Indication: DEPRESSION
     Route: 048
     Dates: start: 2006
  4. EFFEXOR [Suspect]
     Indication: DEPRESSION
     Route: 048
  5. XANAX [Suspect]
     Indication: ANXIETY
     Route: 048
  6. ADDERALL [Suspect]
     Indication: ATTENTION DEFICIT/HYPERACTIVITY DISORDER
     Route: 048
  7. GEODON [Suspect]
     Indication: BIPOLAR DISORDER

REACTIONS (9)
  - Suicidal ideation [Unknown]
  - Mood swings [Unknown]
  - Hallucination [Unknown]
  - Oedema [Recovered/Resolved]
  - Depression [Unknown]
  - Crying [Unknown]
  - Abnormal behaviour [Unknown]
  - Feeling abnormal [Unknown]
  - Loss of libido [Unknown]
